FAERS Safety Report 9722123 (Version 2)
Quarter: 2014Q1

REPORT INFORMATION
  Report Type: Spontaneous
  Country: US (occurrence: US)
  Receive Date: 20131202
  Receipt Date: 20140128
  Transmission Date: 20141002
  Serious: Yes (Hospitalization)
  Sender: FDA-Public Use
  Company Number: US-BIOGENIDEC-2013BI113149

PATIENT
  Age: 62 Year
  Sex: Female

DRUGS (16)
  1. TECFIDERA [Suspect]
     Indication: MULTIPLE SCLEROSIS
     Route: 048
     Dates: start: 20130919
  2. AMPYRA [Concomitant]
  3. LASIX [Concomitant]
  4. LIPITOR [Concomitant]
  5. CIPRO [Concomitant]
  6. METOPROLOL- HCTZ [Concomitant]
  7. COLACE [Concomitant]
  8. CRESTOR [Concomitant]
  9. ASPIRIN [Concomitant]
  10. FIBER [Concomitant]
  11. TYLENOL [Concomitant]
  12. MOTRIN [Concomitant]
  13. VITAMIN D [Concomitant]
  14. FLUCONAZOLE [Concomitant]
  15. VIVELLE-DOT [Concomitant]
  16. DETROL [Concomitant]

REACTIONS (2)
  - Intestinal obstruction [Recovered/Resolved]
  - Urinary tract infection [Not Recovered/Not Resolved]
